FAERS Safety Report 10410310 (Version 2)
Quarter: 2014Q3

REPORT INFORMATION
  Report Type: Spontaneous
  Country: US (occurrence: US)
  Receive Date: 20140826
  Receipt Date: 20140910
  Transmission Date: 20150326
  Serious: Yes (Hospitalization, Other)
  Sender: FDA-Public Use
  Company Number: US-PFIZER INC-2014233804

PATIENT
  Age: 81 Year
  Sex: Female
  Weight: 118 kg

DRUGS (10)
  1. AROMASIN [Suspect]
     Active Substance: EXEMESTANE
     Indication: BREAST CANCER
     Dosage: 25 MG, 1X/DAY (IN THE MORNING)
     Route: 048
  2. NOVOLIN 70/30 [Concomitant]
     Active Substance: INSULIN HUMAN
     Indication: DIABETES MELLITUS
     Dosage: UNK
  3. LASIX [Concomitant]
     Active Substance: FUROSEMIDE
     Dosage: 80 MG, 2X/DAY
  4. METFORMIN [Concomitant]
     Active Substance: METFORMIN HYDROCHLORIDE
     Dosage: 1000 MG, DAILY
  5. DILTIAZEM [Concomitant]
     Active Substance: DILTIAZEM
     Dosage: UNK
  6. SIMVASTATIN. [Concomitant]
     Active Substance: SIMVASTATIN
     Dosage: 10 MG, UNK (AT BEDTIME)
  7. ADVAIR DISKUS [Concomitant]
     Active Substance: FLUTICASONE PROPIONATE\SALMETEROL XINAFOATE
     Dosage: 1 DF (250/50 MCG), 2X/DAY
     Route: 055
  8. OMEPRAZOLE. [Concomitant]
     Active Substance: OMEPRAZOLE
     Dosage: UNK
  9. ALBUTEROL. [Concomitant]
     Active Substance: ALBUTEROL
     Indication: WHEEZING
     Dosage: 2.5 MG, EVERY 6 HOURS
  10. SENNA [Concomitant]
     Active Substance: SENNA LEAF\SENNOSIDES\SENNOSIDES A AND B
     Dosage: 2 DF (8.6 MG), 1X/DAY (AT BEDTIME)

REACTIONS (18)
  - Anaemia of chronic disease [Unknown]
  - Constipation [Unknown]
  - Renal failure acute [Not Recovered/Not Resolved]
  - Gastrointestinal haemorrhage [Unknown]
  - Dyspnoea [Not Recovered/Not Resolved]
  - Large intestine polyp [Unknown]
  - Renal failure chronic [Unknown]
  - Haemorrhoids [Recovered/Resolved]
  - Chronic obstructive pulmonary disease [Unknown]
  - Peripheral swelling [Not Recovered/Not Resolved]
  - Chronic gastritis [Unknown]
  - Iron deficiency anaemia [Unknown]
  - Cough [Not Recovered/Not Resolved]
  - Obesity [Unknown]
  - Weight increased [Unknown]
  - Cardiac failure congestive [Unknown]
  - Dieulafoy^s vascular malformation [Unknown]
  - Hyperkalaemia [Unknown]

NARRATIVE: CASE EVENT DATE: 20140717
